FAERS Safety Report 6033335-X (Version None)
Quarter: 2009Q1

REPORT INFORMATION
  Report Type: 
  Country: None (occurrence: None)
  Receive Date: 20090109
  Receipt Date: 20080917
  Transmission Date: 20090719
  Serious: No
  Sender: FDA-Public Use
  Company Number: A0747947A

PATIENT
  Age: 86 Year
  Sex: Female

DRUGS (2)
  1. REQUIP XL [Suspect]
     Indication: PARKINSON'S DISEASE
     Dosage: 4MG PER DAY
     Route: 048
     Dates: start: 20080818, end: 20080913
  2. SINEMET [Concomitant]

REACTIONS (1)
  - NAUSEA [None]
